FAERS Safety Report 9976249 (Version 1)
Quarter: 2014Q1

REPORT INFORMATION
  Report Type: Report from Study
  Country: US (occurrence: US)
  Receive Date: 20140306
  Receipt Date: 20140306
  Transmission Date: 20141002
  Serious: No
  Sender: FDA-Public Use
  Company Number: US-ABBVIE-13P-163-1165567-00

PATIENT
  Age: 50 Year
  Sex: Female

DRUGS (4)
  1. HUMIRA [Suspect]
     Indication: COLITIS ULCERATIVE
     Dates: start: 20131008, end: 20131008
  2. HUMIRA [Suspect]
     Dates: start: 20131022, end: 20131022
  3. HUMIRA [Suspect]
  4. BALSALAZIDE [Concomitant]
     Indication: COLITIS ULCERATIVE
     Dosage: 750 MG DAILY

REACTIONS (2)
  - Diarrhoea [Not Recovered/Not Resolved]
  - Drug ineffective [Not Recovered/Not Resolved]
